FAERS Safety Report 18399139 (Version 1)
Quarter: 2020Q4

REPORT INFORMATION
  Report Type: Spontaneous
  Country: US (occurrence: US)
  Receive Date: 20201019
  Receipt Date: 20201019
  Transmission Date: 20210114
  Serious: Yes (Hospitalization)
  Sender: FDA-Public Use
  Company Number: None

PATIENT
  Age: 34 Year
  Sex: Female

DRUGS (12)
  1. COMBIGAN [Concomitant]
     Active Substance: BRIMONIDINE TARTRATE\TIMOLOL MALEATE
     Dates: start: 20200909
  2. HYDROCO/APAP [Concomitant]
     Active Substance: ACETAMINOPHEN\HYDROCODONE
     Dates: start: 20201016
  3. KURVELO [Concomitant]
     Active Substance: ETHINYL ESTRADIOL\LEVONORGESTREL
     Dates: start: 20200708
  4. ONDASETRON [Concomitant]
     Active Substance: ONDANSETRON
     Dates: start: 20201016
  5. TIMOLOL. [Concomitant]
     Active Substance: TIMOLOL
     Dates: start: 20200910
  6. HYOSCYAMINE. [Concomitant]
     Active Substance: HYOSCYAMINE
     Dates: start: 20201016
  7. CIPROFLOXACN [Concomitant]
     Active Substance: CIPROFLOXACIN
     Dates: start: 20201015
  8. CITALOPRAM [Concomitant]
     Active Substance: CITALOPRAM HYDROBROMIDE
     Dates: start: 20200326
  9. DORZOL/TIMOL [Concomitant]
     Dates: start: 20200915
  10. HUMIRA [Suspect]
     Active Substance: ADALIMUMAB
     Indication: CROHN^S DISEASE
     Dosage: ?          OTHER FREQUENCY:EVERY 2 WEEKS;?
     Route: 058
  11. METRONIDAZOL [Concomitant]
     Active Substance: METRONIDAZOLE
     Dates: start: 20201016
  12. PREDNISONE. [Concomitant]
     Active Substance: PREDNISONE
     Dates: start: 20200929

REACTIONS (1)
  - Treatment failure [None]
